FAERS Safety Report 8401953-7 (Version None)
Quarter: 2012Q2

REPORT INFORMATION
  Report Type: 
  Country: None (occurrence: None)
  Receive Date: 20120529
  Receipt Date: 20120516
  Transmission Date: 20120825
  Serious: Yes (Hospitalization)
  Sender: FDA-Public Use
  Company Number: 2012SP026749

PATIENT
  Age: 41 Year
  Sex: Female

DRUGS (4)
  1. DIPROSONE [Suspect]
     Indication: PRODUCT USED FOR UNKNOWN INDICATION
     Dosage: CUT
     Route: 003
  2. GESTODENE AND ETHINYL ESTRADIOL [Concomitant]
  3. LEVOTHYROXINE SODIUM [Concomitant]
  4. VITAMIN D [Concomitant]

REACTIONS (5)
  - OTITIS EXTERNA [None]
  - HYPERTHERMIA [None]
  - ERYSIPELAS [None]
  - SKIN EXFOLIATION [None]
  - PEAU D'ORANGE [None]
